FAERS Safety Report 18679569 (Version 2)
Quarter: 2021Q1

REPORT INFORMATION
  Report Type: Spontaneous
  Country: None (occurrence: US)
  Receive Date: 20201230
  Receipt Date: 20210113
  Transmission Date: 20210419
  Serious: Yes (Hospitalization, Other)
  Sender: FDA-Public Use
  Company Number: US-SA-2020SA367133

PATIENT
  Age: 46 Year
  Sex: Female

DRUGS (3)
  1. CERTOLIZUMAB [Concomitant]
     Active Substance: CERTOLIZUMAB
  2. WARFARIN [Concomitant]
     Active Substance: WARFARIN
     Indication: PULMONARY EMBOLISM
  3. LEFLUNOMIDE. [Suspect]
     Active Substance: LEFLUNOMIDE
     Indication: PSORIATIC ARTHROPATHY
     Dosage: UNK

REACTIONS (14)
  - Rectal tenesmus [Recovering/Resolving]
  - Gastrointestinal wall thickening [Recovering/Resolving]
  - Abdominal pain upper [Recovering/Resolving]
  - Diarrhoea [Recovering/Resolving]
  - Leukocytosis [Recovering/Resolving]
  - C-reactive protein increased [Recovering/Resolving]
  - Colitis [Recovering/Resolving]
  - Colonoscopy abnormal [Recovering/Resolving]
  - Cholelithiasis [Recovering/Resolving]
  - Lipase increased [Recovering/Resolving]
  - Abscess intestinal [Recovering/Resolving]
  - Vomiting [Recovering/Resolving]
  - Anticoagulation drug level above therapeutic [Recovering/Resolving]
  - Large intestine erosion [Recovering/Resolving]
